FAERS Safety Report 14821939 (Version 8)
Quarter: 2025Q3

REPORT INFORMATION
  Report Type: Spontaneous
  Country: EU (occurrence: EU)
  Receive Date: 20180427
  Receipt Date: 20250807
  Transmission Date: 20251021
  Serious: Yes (Other)
  Sender: PFIZER
  Company Number: EU-TEVA-2018-GR-872609

PATIENT
  Age: 49 Year
  Sex: Male

DRUGS (2)
  1. OXALIPLATIN [Suspect]
     Active Substance: OXALIPLATIN
     Indication: Colorectal cancer
  2. CAPECITABINE [Suspect]
     Active Substance: CAPECITABINE
     Indication: Colorectal cancer

REACTIONS (3)
  - Non-cirrhotic portal hypertension [Unknown]
  - Varices oesophageal [Unknown]
  - Splenomegaly [Unknown]
